FAERS Safety Report 26214269 (Version 1)
Quarter: 2025Q4

REPORT INFORMATION
  Report Type: Spontaneous
  Country: EU (occurrence: EU)
  Receive Date: 20251230
  Receipt Date: 20251230
  Transmission Date: 20260117
  Serious: Yes (Life-Threatening, Hospitalization, Other)
  Sender: FRESENIUS KABI
  Company Number: None

PATIENT
  Age: 71 Year
  Sex: Male

DRUGS (2)
  1. PEMETREXED [Suspect]
     Active Substance: PEMETREXED
     Indication: Product used for unknown indication
     Dosage: 500 MG/M2 EVERY 21 DAYS?FOA: SOLUTION FOR INFUSION
     Route: 042
     Dates: start: 20250115, end: 20250930
  2. KEYTRUDA [Suspect]
     Active Substance: PEMBROLIZUMAB
     Indication: Product used for unknown indication
     Dosage: 200MG, EVERY 21 DAYS
     Route: 042
     Dates: start: 20250207, end: 20250930

REACTIONS (4)
  - Pneumonia viral [Recovering/Resolving]
  - Respiratory failure [Recovering/Resolving]
  - Chronic obstructive pulmonary disease [Recovering/Resolving]
  - Mucosal inflammation [Recovering/Resolving]

NARRATIVE: CASE EVENT DATE: 20251006
